FAERS Safety Report 10263222 (Version 2)
Quarter: 2014Q2

REPORT INFORMATION
  Report Type: Report from Study
  Country: US (occurrence: US)
  Receive Date: 20140626
  Receipt Date: 20140626
  Transmission Date: 20141212
  Serious: Yes (Death)
  Sender: FDA-Public Use
  Company Number: US-MYLANLABS-2014S1009197

PATIENT
  Age: 70 Year
  Sex: Female

DRUGS (15)
  1. CLOZAPINE TABLETS [Suspect]
     Route: 048
     Dates: start: 201003, end: 201403
  2. CLOZAPINE TABLETS [Suspect]
     Route: 048
     Dates: start: 201003, end: 201403
  3. CITALOPRAM [Concomitant]
  4. LORAZEPAM [Concomitant]
  5. ACETAMINOPHEN [Concomitant]
  6. ALBUTEROL INHALER [Concomitant]
  7. DULCOLAX SP [Concomitant]
  8. VITAMIN D3 [Concomitant]
  9. DSS [Concomitant]
  10. IRON SULFATE [Concomitant]
  11. FIBER [Concomitant]
  12. COMBIVENT [Concomitant]
  13. OXYCODONE [Concomitant]
  14. MIRALAX /00754501/ [Concomitant]
  15. SENNA [Concomitant]

REACTIONS (1)
  - Renal failure chronic [Fatal]
